FAERS Safety Report 7970510-9 (Version None)
Quarter: 2011Q4

REPORT INFORMATION
  Report Type: 
  Country: None (occurrence: None)
  Receive Date: 20111212
  Receipt Date: 20101213
  Transmission Date: 20120403
  Serious: No
  Sender: FDA-Public Use
  Company Number: US-ABBOTT-10P-163-0685894-00

PATIENT
  Sex: Female

DRUGS (1)
  1. VICODIN [Suspect]
     Indication: PAIN MANAGEMENT

REACTIONS (1)
  - DRUG INEFFECTIVE [None]
